FAERS Safety Report 15004053 (Version 1)
Quarter: 2018Q2

REPORT INFORMATION
  Report Type: Spontaneous
  Country: US (occurrence: US)
  Receive Date: 20180524
  Receipt Date: 20180524
  Transmission Date: 20180711
  Serious: No
  Sender: FDA-Public Use
  Company Number: None

PATIENT
  Age: 76 Year
  Sex: Male

DRUGS (1)
  1. SUTENT [Suspect]
     Active Substance: SUNITINIB MALATE
     Indication: RENAL CANCER
     Route: 048
     Dates: start: 20180409, end: 20180426

REACTIONS (6)
  - Abdominal distension [None]
  - Stomatitis [None]
  - Eructation [None]
  - Fatigue [None]
  - Decreased appetite [None]
  - Chromaturia [None]

NARRATIVE: CASE EVENT DATE: 20180426
